FAERS Safety Report 12392080 (Version 1)
Quarter: 2016Q2

REPORT INFORMATION
  Report Type: Spontaneous
  Country: US (occurrence: US)
  Receive Date: 20160523
  Receipt Date: 20160523
  Transmission Date: 20160815
  Serious: No
  Sender: FDA-Public Use
  Company Number: US-TEVA-582806USA

PATIENT
  Sex: Male

DRUGS (3)
  1. GEMCITABINE [Suspect]
     Active Substance: GEMCITABINE\GEMCITABINE HYDROCHLORIDE
     Indication: GALLBLADDER CANCER
     Dosage: UNKNOWN
  2. CISPLATIN. [Suspect]
     Active Substance: CISPLATIN
     Indication: GALLBLADDER CANCER
     Dosage: UNKNOWN
  3. FOLINIC ACID [Suspect]
     Active Substance: LEUCOVORIN
     Indication: GALLBLADDER CANCER
     Dosage: UNKNOWN

REACTIONS (1)
  - Drug ineffective for unapproved indication [Not Recovered/Not Resolved]
